FAERS Safety Report 9887456 (Version 1)
Quarter: 2014Q1

REPORT INFORMATION
  Report Type: Spontaneous
  Country: US (occurrence: None)
  Receive Date: 20140207
  Receipt Date: 20140207
  Transmission Date: 20141002
  Serious: Yes (Life-Threatening)
  Sender: FDA-Public Use
  Company Number: None

PATIENT
  Age: 60 Year
  Sex: Female
  Weight: 37 kg

DRUGS (11)
  1. CITALOPRAM [Suspect]
     Dosage: ONE TAB QD ORAL
     Route: 048
     Dates: start: 20140126, end: 20140127
  2. CITALOPRAM [Concomitant]
  3. ASA [Concomitant]
  4. CLOPIDOGREL [Concomitant]
  5. ATORVASTATIN [Concomitant]
  6. LISINOPRIL [Concomitant]
  7. METOPROLOL [Concomitant]
  8. MIRTAZAPINE [Concomitant]
  9. OXYCODONE [Concomitant]
  10. PREGABLIN [Concomitant]
  11. LORAZEPAM [Concomitant]

REACTIONS (2)
  - Electrocardiogram QT prolonged [None]
  - Substance abuse [None]
